FAERS Safety Report 20755249 (Version 1)
Quarter: 2022Q2

REPORT INFORMATION
  Report Type: Spontaneous
  Country: CA (occurrence: CA)
  Receive Date: 20220427
  Receipt Date: 20220427
  Transmission Date: 20220720
  Serious: Yes (Other)
  Sender: FDA-Public Use
  Company Number: CA-NOVARTISPH-NVSC2022CA094286

PATIENT
  Age: 66 Year
  Sex: Female
  Weight: 79.37 kg

DRUGS (5)
  1. VALSARTAN [Suspect]
     Active Substance: VALSARTAN
     Indication: Hypertension
     Dosage: 160 MG, QD (THERAPY DURATION 6.0 DAYS)
     Route: 048
  2. VALSARTAN [Suspect]
     Active Substance: VALSARTAN
     Dosage: UNK (THERAPY DURATION 1.0 WEEKS)
     Route: 048
  3. VALSARTAN [Suspect]
     Active Substance: VALSARTAN
     Dosage: 8 MG, QD (THERAPY DURATION 276.0 DAYS))
     Route: 048
  4. AMLODIPINE [Concomitant]
     Active Substance: AMLODIPINE BESYLATE
     Indication: Product used for unknown indication
     Dosage: UNK
     Route: 065
  5. PANTOPRAZOLE [Concomitant]
     Active Substance: PANTOPRAZOLE
     Indication: Product used for unknown indication
     Dosage: UNK
     Route: 065

REACTIONS (4)
  - Ear discomfort [Recovered/Resolved]
  - Head discomfort [Recovered/Resolved]
  - Dizziness [Recovered/Resolved]
  - Product supply issue [Recovered/Resolved]
